FAERS Safety Report 4921526-8 (Version None)
Quarter: 2006Q1

REPORT INFORMATION
  Report Type: 
  Country: None (occurrence: None)
  Receive Date: 20060222
  Receipt Date: 20060222
  Transmission Date: 20060701
  Serious: Yes (Hospitalization)
  Sender: FDA-Public Use
  Company Number: None

PATIENT
  Age: 41 Year
  Sex: Male
  Weight: 90.7194 kg

DRUGS (2)
  1. GABITRIL [Suspect]
     Indication: POST-TRAUMATIC STRESS DISORDER
     Dosage: 32 MG DAILY PO
     Route: 048
     Dates: start: 20010320, end: 20010320
  2. GABITRIL [Suspect]
     Indication: POST-TRAUMATIC STRESS DISORDER
     Dosage: 32 MG DAILY PO
     Route: 048
     Dates: start: 20031120, end: 20031120

REACTIONS (3)
  - COMA [None]
  - FAMILY STRESS [None]
  - GRAND MAL CONVULSION [None]
